FAERS Safety Report 19417438 (Version 1)
Quarter: 2021Q2

REPORT INFORMATION
  Report Type: Spontaneous
  Country: CN (occurrence: CN)
  Receive Date: 20210615
  Receipt Date: 20210615
  Transmission Date: 20210717
  Serious: Yes (Hospitalization, Other)
  Sender: FDA-Public Use
  Company Number: CN-BAXTER-2021BAX015689

PATIENT
  Age: 42 Year
  Sex: Female
  Weight: 45 kg

DRUGS (6)
  1. 5% GLUCOSE  INJECTION [Suspect]
     Active Substance: DEXTROSE
     Indication: MEDICATION DILUTION
     Dosage: PIRARUBICIN HYDROCHLORIDE 64MG + 5% GLUCOSE 250 ML
     Route: 041
     Dates: start: 20210523, end: 20210523
  2. ENDOXAN [Suspect]
     Active Substance: CYCLOPHOSPHAMIDE
     Indication: BREAST CANCER FEMALE
     Dosage: ENDOXAN 0.78 G + 0.9% SODIUM CHLORIDE 100 ML
     Route: 041
     Dates: start: 20210523, end: 20210523
  3. PIRARUBICIN HYDROCHLORIDE [Suspect]
     Active Substance: PIRARUBICIN HYDROCHLORIDE
     Indication: METASTASES TO LUNG
  4. ENDOXAN [Suspect]
     Active Substance: CYCLOPHOSPHAMIDE
     Indication: METASTASES TO LUNG
  5. 0.9% SODIUM CHLORIDE INJECTION [Suspect]
     Active Substance: SODIUM CHLORIDE
     Indication: MEDICATION DILUTION
     Dosage: ENDOXAN 0.78 G + 0.9% SODIUM CHLORIDE 100 ML
     Route: 041
     Dates: start: 20210523, end: 20210523
  6. PIRARUBICIN HYDROCHLORIDE [Suspect]
     Active Substance: PIRARUBICIN HYDROCHLORIDE
     Indication: BREAST CANCER FEMALE
     Dosage: DOSAGE FROM: LYOPHILIZED POWDER; PIRARUBICIN HYDROCHLORIDE 64MG + 5% GLUCOSE 250 ML
     Route: 041
     Dates: start: 20210523, end: 20210523

REACTIONS (2)
  - Neutrophil count decreased [Recovering/Resolving]
  - White blood cell count decreased [Recovering/Resolving]

NARRATIVE: CASE EVENT DATE: 20210529
